FAERS Safety Report 9694681 (Version 2)
Quarter: 2013Q4

REPORT INFORMATION
  Report Type: Spontaneous
  Country: US (occurrence: US)
  Receive Date: 20131119
  Receipt Date: 20131126
  Transmission Date: 20140711
  Serious: Yes (Hospitalization)
  Sender: FDA-Public Use
  Company Number: US-BIOGENIDEC-2013BI109931

PATIENT
  Age: 46 Year
  Sex: Female

DRUGS (1)
  1. TYSABRI [Suspect]
     Indication: CROHN^S DISEASE
     Route: 042
     Dates: start: 20130409

REACTIONS (5)
  - Dehydration [Unknown]
  - Renal failure acute [Unknown]
  - Cellulitis [Unknown]
  - Fistula [Unknown]
  - Skin infection [Not Recovered/Not Resolved]
